FAERS Safety Report 19140113 (Version 1)
Quarter: 2021Q2

REPORT INFORMATION
  Report Type: Spontaneous
  Country: IR (occurrence: IR)
  Receive Date: 20210415
  Receipt Date: 20210415
  Transmission Date: 20210717
  Serious: Yes (Hospitalization, Other)
  Sender: FDA-Public Use
  Company Number: IR-IPCA LABORATORIES LIMITED-IPC-2021-IR-000877

PATIENT

DRUGS (2)
  1. TRAMADOL HYDROCHLORIDE TABLET [Suspect]
     Active Substance: TRAMADOL HYDROCHLORIDE
     Dosage: UNK
     Route: 065
  2. TRAMADOL HYDROCHLORIDE TABLET [Suspect]
     Active Substance: TRAMADOL HYDROCHLORIDE
     Indication: PRODUCT USED FOR UNKNOWN INDICATION
     Dosage: 200 MILLIGRAM (20 DAYS EARLIER)
     Route: 065

REACTIONS (6)
  - Guillain-Barre syndrome [Recovering/Resolving]
  - Acute respiratory distress syndrome [Unknown]
  - Toxicity to various agents [Unknown]
  - Loss of consciousness [Unknown]
  - Generalised tonic-clonic seizure [Unknown]
  - Quadriplegia [Unknown]
